FAERS Safety Report 24569903 (Version 2)
Quarter: 2024Q4

REPORT INFORMATION
  Report Type: Spontaneous
  Country: CH (occurrence: CH)
  Receive Date: 20241031
  Receipt Date: 20241105
  Transmission Date: 20250115
  Serious: Yes (Other)
  Sender: INCYTE
  Company Number: CH-INCYTE CORPORATION-2024IN011393

PATIENT

DRUGS (1)
  1. PEMAZYRE [Suspect]
     Active Substance: PEMIGATINIB
     Indication: Adenocarcinoma
     Dosage: UNK
     Route: 065
     Dates: start: 202202, end: 202211

REACTIONS (8)
  - Hepatic cancer [Unknown]
  - Disease progression [Unknown]
  - Fatigue [Unknown]
  - Hypercreatinaemia [Unknown]
  - Alopecia [Unknown]
  - Dry eye [Unknown]
  - Hyperphosphataemia [Unknown]
  - Off label use [Unknown]

NARRATIVE: CASE EVENT DATE: 20220201
